FAERS Safety Report 11783195 (Version 2)
Quarter: 2018Q1

REPORT INFORMATION
  Report Type: Report from Study
  Country: JP (occurrence: JP)
  Receive Date: 20151127
  Receipt Date: 20180327
  Transmission Date: 20180508
  Serious: Yes (Death, Life-Threatening, Hospitalization)
  Sender: FDA-Public Use
  Company Number: PHHY2013JP169348

PATIENT
  Age: 42 Year
  Sex: Female
  Weight: 53 kg

DRUGS (5)
  1. VOTRIENT [Suspect]
     Active Substance: PAZOPANIB HYDROCHLORIDE
     Indication: SPINDLE CELL SARCOMA
     Dosage: 400 MG, QD
     Route: 048
     Dates: start: 20130309, end: 20130328
  2. ALLEGRA [Concomitant]
     Active Substance: FEXOFENADINE HYDROCHLORIDE
     Indication: PRODUCT USED FOR UNKNOWN INDICATION
     Route: 048
  3. VOTRIENT [Suspect]
     Active Substance: PAZOPANIB HYDROCHLORIDE
     Dosage: 400 MG, QD
     Route: 048
     Dates: start: 20130411, end: 20130506
  4. GASTER [Concomitant]
     Active Substance: FAMOTIDINE
     Indication: HYPERCHLORHYDRIA
     Dosage: 20 MG, BID
     Route: 048
     Dates: end: 20130417
  5. MUCOSTA [Concomitant]
     Active Substance: REBAMIPIDE
     Indication: PROPHYLAXIS
     Dosage: 100 MG, TID
     Route: 048
     Dates: end: 20130417

REACTIONS (10)
  - Gastrointestinal haemorrhage [Fatal]
  - Peritonitis [Fatal]
  - Shock haemorrhagic [Fatal]
  - Biliary anastomosis complication [Unknown]
  - Small intestinal haemorrhage [Fatal]
  - Hepatic function abnormal [Recovered/Resolved]
  - Glossitis [Recovering/Resolving]
  - Hair colour changes [Recovering/Resolving]
  - Haematemesis [Fatal]
  - Device related infection [Fatal]

NARRATIVE: CASE EVENT DATE: 20130328
